FAERS Safety Report 8415003-X (Version None)
Quarter: 2012Q2

REPORT INFORMATION
  Report Type: 
  Country: None (occurrence: None)
  Receive Date: 20120606
  Receipt Date: 20120416
  Transmission Date: 20120825
  Serious: No
  Sender: FDA-Public Use
  Company Number: US-GLAXOSMITHKLINE-A0973847A

PATIENT
  Age: 29 Year
  Sex: Female

DRUGS (3)
  1. LAMICTAL [Suspect]
     Indication: AFFECTIVE DISORDER
     Dosage: 100MG PER DAY
     Route: 048
     Dates: start: 20111001, end: 20120220
  2. LAMOTRIGINE [Suspect]
     Indication: AFFECTIVE DISORDER
     Route: 065
  3. FISH OIL [Concomitant]

REACTIONS (2)
  - ECZEMA [None]
  - THERAPEUTIC RESPONSE UNEXPECTED [None]
